FAERS Safety Report 6112144-7 (Version None)
Quarter: 2009Q1

REPORT INFORMATION
  Report Type: 
  Country: None (occurrence: None)
  Receive Date: 20090310
  Receipt Date: 20090223
  Transmission Date: 20090719
  Serious: Yes (Hospitalization)
  Sender: FDA-Public Use
  Company Number: 231087K09USA

PATIENT
  Age: 50 Year
  Sex: Female
  Weight: 82 kg

DRUGS (8)
  1. REBIF [Suspect]
     Indication: MULTIPLE SCLEROSIS
     Dosage: 44 MCG, 3 IN 1 WEEKS, SUBCUTANEOUS
     Route: 058
     Dates: start: 20050609
  2. PROZAC [Concomitant]
  3. PROVIGIL [Concomitant]
  4. MACRODANTIN [Concomitant]
  5. BACTRIM [Concomitant]
  6. LYRICA [Concomitant]
  7. ESTRADIOL [Concomitant]
  8. MEDROPROGESTERONE (PROGESTERONE) [Concomitant]

REACTIONS (5)
  - FAECAL INCONTINENCE [None]
  - NEUROGENIC BLADDER [None]
  - SKIN LESION [None]
  - SKIN ULCER [None]
  - STAPHYLOCOCCAL INFECTION [None]
